FAERS Safety Report 10430169 (Version 2)
Quarter: 2014Q4

REPORT INFORMATION
  Report Type: Spontaneous
  Country: US (occurrence: US)
  Receive Date: 20140904
  Receipt Date: 20141027
  Transmission Date: 20150528
  Serious: Yes (Other)
  Sender: FDA-Public Use
  Company Number: US-BAYER-2014-128363

PATIENT
  Age: 21 Year
  Sex: Female
  Weight: 58.96 kg

DRUGS (2)
  1. MIRENA [Suspect]
     Active Substance: LEVONORGESTREL
     Indication: CONTRACEPTION
     Dosage: 20 MCG/24HR, CONT
     Route: 015
     Dates: start: 20101227, end: 20110429
  2. DICLOXACILLIN [Concomitant]
     Active Substance: DICLOXACILLIN
     Dosage: UNK
     Route: 048
     Dates: start: 20101216

REACTIONS (5)
  - Device dislocation [None]
  - Pelvic pain [None]
  - Device issue [None]
  - Uterine perforation [None]
  - Injury [None]

NARRATIVE: CASE EVENT DATE: 201103
